FAERS Safety Report 9861450 (Version 1)
Quarter: 2014Q1

REPORT INFORMATION
  Report Type: Spontaneous
  Country: US (occurrence: US)
  Receive Date: 20140203
  Receipt Date: 20140203
  Transmission Date: 20141002
  Serious: Yes (Hospitalization)
  Sender: FDA-Public Use
  Company Number: US-BIOGENIDEC-2014BI006588

PATIENT
  Age: 37 Year
  Sex: Female

DRUGS (2)
  1. TYSABRI [Suspect]
     Indication: MULTIPLE SCLEROSIS
     Route: 042
     Dates: start: 20081113, end: 20131216
  2. FLU SHOT [Concomitant]

REACTIONS (5)
  - Multiple sclerosis relapse [Recovered/Resolved]
  - White blood cell count increased [Unknown]
  - Hallucination [Recovered/Resolved]
  - Herpes zoster [Recovered/Resolved]
  - Feeling abnormal [Recovered/Resolved]
